FAERS Safety Report 10747658 (Version 4)
Quarter: 2015Q1

REPORT INFORMATION
  Report Type: Spontaneous
  Country: FR (occurrence: FR)
  Receive Date: 20150129
  Receipt Date: 20150313
  Transmission Date: 20150721
  Serious: Yes (Life-Threatening, Hospitalization)
  Sender: FDA-Public Use
  Company Number: FR-JNJFOC-20150112509

PATIENT
  Age: 58 Year
  Sex: Female

DRUGS (12)
  1. THERALENE [Suspect]
     Active Substance: TRIMEPRAZINE
     Indication: TOXICITY TO VARIOUS AGENTS
     Route: 048
     Dates: start: 20141216, end: 20141216
  2. LEXOMIL [Suspect]
     Active Substance: BROMAZEPAM
     Indication: PRODUCT USED FOR UNKNOWN INDICATION
     Route: 048
  3. DOMPERIDONE [Suspect]
     Active Substance: DOMPERIDONE
     Indication: TOXICITY TO VARIOUS AGENTS
     Route: 048
     Dates: start: 20141216, end: 20141216
  4. PARACETAMOL [Suspect]
     Active Substance: ACETAMINOPHEN
     Indication: TOXICITY TO VARIOUS AGENTS
     Route: 048
     Dates: start: 20141216, end: 20141216
  5. IXPRIM [Suspect]
     Active Substance: ACETAMINOPHEN\TRAMADOL HYDROCHLORIDE
     Indication: TOXICITY TO VARIOUS AGENTS
     Route: 048
     Dates: start: 20141216, end: 20141216
  6. SEROPLEX [Concomitant]
     Active Substance: ESCITALOPRAM OXALATE
     Indication: PRODUCT USED FOR UNKNOWN INDICATION
     Route: 048
  7. PARACETAMOL [Suspect]
     Active Substance: ACETAMINOPHEN
     Route: 048
  8. ZOPICLONE [Suspect]
     Active Substance: ZOPICLONE
     Indication: TOXICITY TO VARIOUS AGENTS
     Route: 048
     Dates: start: 20141216, end: 20141216
  9. UTROGESTAN [Concomitant]
     Active Substance: PROGESTERONE
     Indication: PRODUCT USED FOR UNKNOWN INDICATION
     Route: 048
  10. LOPERAMIDE [Suspect]
     Active Substance: LOPERAMIDE
     Indication: TOXICITY TO VARIOUS AGENTS
     Route: 048
     Dates: start: 20141216, end: 20141216
  11. ESCITALOPRAM [Suspect]
     Active Substance: ESCITALOPRAM OXALATE
     Indication: TOXICITY TO VARIOUS AGENTS
     Route: 048
     Dates: start: 20141216, end: 20141216
  12. IMOVANE [Concomitant]
     Active Substance: ZOPICLONE
     Indication: PRODUCT USED FOR UNKNOWN INDICATION
     Route: 048

REACTIONS (5)
  - Suicide attempt [Recovered/Resolved]
  - Sinus bradycardia [Recovered/Resolved]
  - Electrocardiogram QT prolonged [Recovered/Resolved]
  - Atrioventricular block first degree [Recovered/Resolved]
  - Coma [Recovered/Resolved]

NARRATIVE: CASE EVENT DATE: 20141216
